FAERS Safety Report 12896907 (Version 1)
Quarter: 2016Q4

REPORT INFORMATION
  Report Type: Spontaneous
  Country: US (occurrence: US)
  Receive Date: 20161031
  Receipt Date: 20161031
  Transmission Date: 20170207
  Serious: No
  Sender: FDA-Public Use
  Company Number: US-PFIZER INC-2016503616

PATIENT
  Age: 69 Year
  Sex: Female

DRUGS (1)
  1. XELJANZ [Suspect]
     Active Substance: TOFACITINIB CITRATE
     Dosage: 5 MG, UNK

REACTIONS (12)
  - Arthropathy [Unknown]
  - Vomiting [Unknown]
  - Pathological fracture [Unknown]
  - Fatigue [Unknown]
  - Decreased activity [Unknown]
  - Bone disorder [Unknown]
  - Musculoskeletal stiffness [Unknown]
  - Eating disorder [Unknown]
  - Joint swelling [Unknown]
  - Myalgia [Unknown]
  - Memory impairment [Unknown]
  - Body height decreased [Unknown]
